FAERS Safety Report 5218027-9 (Version None)
Quarter: 2007Q1

REPORT INFORMATION
  Report Type: 
  Country: None (occurrence: None)
  Receive Date: 20061130
  Receipt Date: 20061004
  Transmission Date: 20070707
  Serious: Yes (Other)
  Sender: FDA-Public Use
  Company Number: US200609000296

PATIENT
  Age: 46 Year
  Sex: Male
  Weight: 150.6 kg

DRUGS (3)
  1. ZYPREXA [Suspect]
     Indication: DRUG USE FOR UNKNOWN INDICATION
     Dates: start: 19970101, end: 20030101
  2. GLYBURIDE AND METFORMIN HCL [Suspect]
     Indication: DIABETES MELLITUS
  3. GLIPIZIDE [Concomitant]

REACTIONS (5)
  - ACETONAEMIA [None]
  - DIABETES MELLITUS [None]
  - HYPERGLYCAEMIC HYPEROSMOLAR NONKETOTIC SYNDROME [None]
  - METABOLIC DISORDER [None]
  - OBESITY [None]
